FAERS Safety Report 4401297-4 (Version None)
Quarter: 2004Q3

REPORT INFORMATION
  Report Type: 
  Country: None (occurrence: None)
  Receive Date: 20040907
  Receipt Date: 20040217
  Transmission Date: 20050211
  Serious: No
  Sender: FDA-Public Use
  Company Number: US-BRISTOL-MYERS SQUIBB COMPANY-12510004

PATIENT
  Age: 69 Year
  Sex: Female
  Weight: 80 kg

DRUGS (17)
  1. COUMADIN [Suspect]
     Indication: ATRIAL FIBRILLATION
     Dosage: DOSE VALUE: 5MG ON M/W/F ALTERNATING WITH 2.5MG
     Route: 048
     Dates: start: 20040128
  2. NITROGLYCERIN [Concomitant]
  3. BETAPACE [Concomitant]
  4. MULTI-VITAMIN [Concomitant]
  5. FOLIC ACID [Concomitant]
  6. FISH OIL [Concomitant]
  7. PEPCID [Concomitant]
  8. NIASPAN [Concomitant]
  9. LIPITOR [Concomitant]
  10. FLONASE [Concomitant]
  11. SYNTHROID [Concomitant]
  12. CLONIDINE HCL [Concomitant]
  13. THIAMINE HCL [Concomitant]
  14. VITAMIN B6 [Concomitant]
  15. HYZAAR [Concomitant]
     Dosage: 100MG/50MG
  16. VITAMIN C [Concomitant]
  17. CALCIUM [Concomitant]

REACTIONS (2)
  - ERYTHEMA [None]
  - HEADACHE [None]
